FAERS Safety Report 6399457-9 (Version None)
Quarter: 2009Q4

REPORT INFORMATION
  Report Type: 
  Country: None (occurrence: None)
  Receive Date: 20091014
  Receipt Date: 20091002
  Transmission Date: 20100525
  Serious: Yes (Hospitalization, Other)
  Sender: FDA-Public Use
  Company Number: PHHY2008JP22129

PATIENT
  Sex: Female

DRUGS (10)
  1. TEGRETOL [Suspect]
     Indication: TRIGEMINAL NEURALGIA
     Dosage: 200 MG DAILY
     Route: 048
     Dates: start: 20080508, end: 20080614
  2. THYRADIN S [Concomitant]
     Indication: THYROIDITIS CHRONIC
     Dosage: 100 UG, UNK
     Route: 048
     Dates: start: 20080116
  3. DEPAS [Concomitant]
     Indication: DEPRESSION
     Dosage: 1 MG, UNK
     Route: 048
     Dates: start: 20080116
  4. LENDORMIN [Concomitant]
     Indication: INSOMNIA
     Dosage: 0.25 MG, UNK
     Route: 048
     Dates: start: 20080116
  5. ENTERONON R [Concomitant]
     Indication: GASTRITIS
     Dosage: 1 G
     Route: 048
     Dates: start: 20080302
  6. ALDIOXA [Concomitant]
     Indication: GASTRITIS
     Dosage: 2 G
     Dates: start: 20080302
  7. PIPETHANATE HYDROCHLORIDE [Concomitant]
     Indication: GASTRITIS
     Dosage: 1 G
     Dates: start: 20080302
  8. SELBEX [Concomitant]
     Indication: GASTRITIS
     Dosage: 2 DF
     Route: 048
     Dates: start: 20080302
  9. GASPORT [Concomitant]
     Indication: URETHRITIS
     Dosage: 4 DF
     Dates: start: 20080302
  10. SULPIRIDE [Concomitant]
     Indication: DEPRESSION
     Dosage: 4 DF
     Dates: start: 20080107

REACTIONS (8)
  - BLOOD ALKALINE PHOSPHATASE INCREASED [None]
  - DRUG ERUPTION [None]
  - GAMMA-GLUTAMYLTRANSFERASE INCREASED [None]
  - GASTROENTERITIS [None]
  - NASOPHARYNGITIS [None]
  - OROPHARYNGEAL PAIN [None]
  - PHARYNGITIS [None]
  - RASH MORBILLIFORM [None]
